FAERS Safety Report 8382040-3 (Version None)
Quarter: 2012Q2

REPORT INFORMATION
  Report Type: 
  Country: None (occurrence: None)
  Receive Date: 20120524
  Receipt Date: 20120511
  Transmission Date: 20120825
  Serious: Yes (Disabling, Other)
  Sender: FDA-Public Use
  Company Number: US-CELGENEUS-163-21880-12050062

PATIENT
  Sex: Male
  Weight: 117.9 kg

DRUGS (20)
  1. REVLIMID [Suspect]
     Dosage: 5 MILLIGRAM
     Route: 048
     Dates: start: 20120428
  2. EYE VITAMINS [Concomitant]
     Dosage: 1 TABLET
     Route: 048
     Dates: start: 20110914
  3. VITAMIN D [Concomitant]
     Dosage: 2 TABLET
     Route: 048
     Dates: start: 20110914
  4. XALATAN [Concomitant]
     Dosage: 1 DROPS
     Route: 047
     Dates: start: 20051214
  5. REVLIMID [Suspect]
     Indication: MULTIPLE MYELOMA
     Dosage: 15 MILLIGRAM
     Route: 048
     Dates: start: 20110201
  6. POTASSIUM CHLORIDE [Concomitant]
     Dosage: 20 MILLIEQUIVALENTS
     Route: 048
     Dates: start: 20110902
  7. TRUSOPT [Concomitant]
     Dosage: 1 DROPS
     Route: 047
     Dates: start: 20060406
  8. WARFARIN SODIUM [Concomitant]
     Dosage: 6 MILLIGRAM
     Route: 048
     Dates: start: 20110329
  9. CALCIUM CITRATE +D [Concomitant]
     Dosage: 1 TABLET
     Route: 065
     Dates: start: 20110221
  10. DIPHENOXYLATE HCL + ATROPINE SULFATE [Concomitant]
     Dosage: 2.5-0.025 MG/1-2 TABS
     Route: 048
     Dates: start: 20111213
  11. FLOMAX [Concomitant]
     Dosage: .4 MILLIGRAM
     Route: 048
     Dates: start: 20110221
  12. FUROSEMIDE [Concomitant]
     Dosage: 40 MILLIGRAM
     Route: 048
     Dates: start: 20110221
  13. DESENEX [Concomitant]
     Dosage: 50 MILLIGRAM
     Route: 065
     Dates: start: 20110221
  14. REVLIMID [Suspect]
     Dosage: 5 MILLIGRAM
     Route: 048
     Dates: start: 20110601, end: 20111205
  15. ALLOPURINOL [Concomitant]
     Dosage: 100 MILLIGRAM
     Route: 048
     Dates: start: 20110221
  16. LISINOPRIL [Concomitant]
     Dosage: 5 MILLIGRAM
     Route: 048
     Dates: start: 20120224
  17. SAW PALMETTO [Concomitant]
     Dosage: 160 MILLIGRAM
     Route: 048
     Dates: start: 20110914
  18. ASCORBIC ACID [Concomitant]
     Dosage: 1000 MILLIGRAM
     Route: 065
     Dates: start: 20110914
  19. HYDROCODONE BITARTRATE + ACETAMINOPHEN [Concomitant]
     Dosage: 5-500MG
     Route: 048
     Dates: start: 20110224
  20. ZINC SULFATE [Concomitant]
     Dosage: 50 MILLIGRAM
     Route: 048
     Dates: start: 20110221

REACTIONS (6)
  - FATIGUE [None]
  - PANCYTOPENIA [None]
  - BENIGN NEOPLASM OF SKIN [None]
  - PNEUMONITIS [None]
  - CARDIAC FAILURE CONGESTIVE [None]
  - ATRIAL FIBRILLATION [None]
